FAERS Safety Report 5370895-6 (Version None)
Quarter: 2007Q2

REPORT INFORMATION
  Report Type: 
  Country: None (occurrence: None)
  Receive Date: 20070614
  Receipt Date: 20070328
  Transmission Date: 20071010
  Serious: No
  Sender: FDA-Public Use
  Company Number: BDI-009298

PATIENT
  Age: 14 Year
  Sex: Male
  Weight: 68.18 kg

DRUGS (9)
  1. MULTIHANCE [Suspect]
     Indication: NUCLEAR MAGNETIC RESONANCE IMAGING BRAIN
     Dosage: IV
     Route: 042
     Dates: start: 20070326, end: 20070326
  2. MULTIHANCE [Suspect]
     Indication: PITUITARY TUMOUR
     Dosage: IV
     Route: 042
     Dates: start: 20070326, end: 20070326
  3. PREVACID [Concomitant]
  4. SINGULAIR /01362601/ [Concomitant]
  5. ALBUTEROL [Concomitant]
  6. ZOFRAN [Concomitant]
  7. TYLENOL W/ CODEINE [Concomitant]
  8. VERSED [Concomitant]
  9. FENTANYL [Concomitant]

REACTIONS (2)
  - THROAT TIGHTNESS [None]
  - URTICARIA [None]
